FAERS Safety Report 5880838-4 (Version None)
Quarter: 2008Q3

REPORT INFORMATION
  Report Type: 
  Country: None (occurrence: None)
  Receive Date: 20080912
  Receipt Date: 20080611
  Transmission Date: 20090109
  Serious: No
  Sender: FDA-Public Use
  Company Number: US-ABBOTT-08P-163-0456493-00

PATIENT
  Sex: Female
  Weight: 56.75 kg

DRUGS (3)
  1. HUMIRA [Suspect]
     Indication: RHEUMATOID ARTHRITIS
     Route: 058
     Dates: start: 20060801, end: 20080601
  2. HUMIRA [Suspect]
     Dates: start: 20080601
  3. HUMIRA [Suspect]
     Dosage: PENS

REACTIONS (1)
  - DRUG INEFFECTIVE [None]
